FAERS Safety Report 17522442 (Version 1)
Quarter: 2020Q1

REPORT INFORMATION
  Report Type: Spontaneous
  Country: FR (occurrence: FR)
  Receive Date: 20200310
  Receipt Date: 20200310
  Transmission Date: 20200409
  Serious: Yes (Life-Threatening, Other)
  Sender: FDA-Public Use
  Company Number: FR-MYLANLABS-2020M1025849

PATIENT
  Age: 85 Year
  Sex: Male

DRUGS (1)
  1. MIDAZOLAM MYLAN [Suspect]
     Active Substance: MIDAZOLAM HYDROCHLORIDE
     Indication: PRODUCT USED FOR UNKNOWN INDICATION
     Dosage: 10 MILLIGRAM (BY AN ELECTRIC SYRINGE)
     Dates: start: 20150610

REACTIONS (5)
  - Chest pain [Unknown]
  - Disturbance in attention [Unknown]
  - Respiratory distress [Unknown]
  - Respiratory acidosis [Unknown]
  - Hypercapnia [Unknown]
